FAERS Safety Report 8180946-1 (Version None)
Quarter: 2012Q1

REPORT INFORMATION
  Report Type: 
  Country: None (occurrence: None)
  Receive Date: 20120301
  Receipt Date: 20120301
  Transmission Date: 20120608
  Serious: Yes (Other)
  Sender: FDA-Public Use
  Company Number: None

PATIENT
  Age: 39 Year
  Sex: Female
  Weight: 61.2356 kg

DRUGS (4)
  1. SYNTHROID [Concomitant]
  2. XYREM [Suspect]
     Indication: NARCOLEPSY
     Dosage: 3.5 GM PO Q 4 HOURS X 2 DOSES EACH NIGHT - DID NOT TAKE 2ND DOSE THAT NIGHT   ~6-8 MOS AGO ?
     Route: 048
     Dates: end: 20120118
  3. XYREM [Suspect]
     Indication: CATAPLEXY
     Dosage: 3.5 GM PO Q 4 HOURS X 2 DOSES EACH NIGHT - DID NOT TAKE 2ND DOSE THAT NIGHT   ~6-8 MOS AGO ?
     Route: 048
     Dates: end: 20120118
  4. YAZ [Concomitant]

REACTIONS (9)
  - MOUTH INJURY [None]
  - FALL [None]
  - CONCUSSION [None]
  - DIZZINESS [None]
  - VOMITING [None]
  - NAUSEA [None]
  - FACE INJURY [None]
  - AMNESIA [None]
  - HEAD INJURY [None]
